FAERS Safety Report 5134492-X (Version None)
Quarter: 2006Q4

REPORT INFORMATION
  Report Type: 
  Country: None (occurrence: None)
  Receive Date: 20061023
  Receipt Date: 20061023
  Transmission Date: 20070319
  Serious: Yes (Hospitalization)
  Sender: FDA-Public Use
  Company Number: None

PATIENT
  Sex: Female

DRUGS (2)
  1. PHOSPHOSODA [Suspect]
     Indication: COLONOSCOPY
  2. ANTIHYPERTENSIVES [Concomitant]

REACTIONS (1)
  - RENAL FAILURE [None]
